FAERS Safety Report 5268682-2 (Version None)
Quarter: 2007Q1

REPORT INFORMATION
  Report Type: 
  Country: None (occurrence: None)
  Receive Date: 20070313
  Receipt Date: 20070226
  Transmission Date: 20070707
  Serious: Yes (Disabling)
  Sender: FDA-Public Use
  Company Number: 15746

PATIENT
  Age: 48 Year
  Sex: Male

DRUGS (1)
  1. AMIODARONE HCL [Suspect]
     Dosage: 200 MG DAILY UNK

REACTIONS (2)
  - PIGMENTATION DISORDER [None]
  - SKIN DISCOLOURATION [None]
